FAERS Safety Report 16753994 (Version 1)
Quarter: 2019Q3

REPORT INFORMATION
  Report Type: Spontaneous
  Country: US (occurrence: US)
  Receive Date: 20190829
  Receipt Date: 20190829
  Transmission Date: 20191005
  Serious: Yes (Hospitalization, Other)
  Sender: FDA-Public Use
  Company Number: US-RISING PHARMACEUTICALS, INC.-2019RIS00459

PATIENT
  Sex: Female
  Weight: 73.47 kg

DRUGS (12)
  1. ATENOLOL. [Suspect]
     Active Substance: ATENOLOL
     Indication: BLOOD PRESSURE ABNORMAL
     Dosage: 50 MG, 1X/DAY
     Dates: start: 1999
  2. WARFARIN SODIUM. [Suspect]
     Active Substance: WARFARIN SODIUM
     Indication: ATRIAL FIBRILLATION
     Dosage: 5 MG, 1X/DAY ^5 DAYS A WEEK^
     Route: 048
     Dates: start: 201607
  3. WARFARIN SODIUM. [Suspect]
     Active Substance: WARFARIN SODIUM
     Dosage: 5 MG, 1X/DAY ^2 DAYS A WEEK^
     Route: 048
     Dates: start: 201607
  4. WARFARIN SODIUM. [Suspect]
     Active Substance: WARFARIN SODIUM
     Dosage: ^COUPLE OF TWEAKS NOW AND THEN, BUT NOTHING MAJOR^
  5. BIOTIN [Concomitant]
     Active Substance: BIOTIN
  6. WARFARIN SODIUM. [Suspect]
     Active Substance: WARFARIN SODIUM
     Dosage: 5 MG, 1X/DAY ^5 DAYS A WEEK^
     Route: 048
  7. VITAMIN C [Concomitant]
     Active Substance: ASCORBIC ACID
  8. LISINOPRIL. [Suspect]
     Active Substance: LISINOPRIL
     Indication: BLOOD PRESSURE ABNORMAL
  9. LOSARTAN. [Suspect]
     Active Substance: LOSARTAN
     Indication: BLOOD PRESSURE ABNORMAL
  10. WARFARIN SODIUM. [Suspect]
     Active Substance: WARFARIN SODIUM
     Dosage: REDUCED DOSE
     Dates: start: 2018
  11. WARFARIN SODIUM. [Suspect]
     Active Substance: WARFARIN SODIUM
     Dosage: 5 MG, 1X/DAY ^2 DAYS A WEEK^
     Route: 048
  12. DAILY MULTIVITAMIN FOR OVER 50 YEAR OLD PEOPLE [Concomitant]

REACTIONS (6)
  - Ulcer haemorrhage [Unknown]
  - International normalised ratio increased [Recovered/Resolved]
  - Atrial fibrillation [Unknown]
  - Pain [Not Recovered/Not Resolved]
  - International normalised ratio decreased [Recovered/Resolved]
  - Osteoarthritis [Not Recovered/Not Resolved]

NARRATIVE: CASE EVENT DATE: 2009
